FAERS Safety Report 6447064-1 (Version None)
Quarter: 2009Q4

REPORT INFORMATION
  Report Type: 
  Country: None (occurrence: None)
  Receive Date: 20091119
  Receipt Date: 20091110
  Transmission Date: 20100525
  Serious: Yes (Life-Threatening, Other)
  Sender: FDA-Public Use
  Company Number: JP-ABBOTT-09P-087-0603101-00

PATIENT
  Sex: Male
  Weight: 76 kg

DRUGS (10)
  1. SEVOFRANE [Suspect]
     Indication: MAINTENANCE OF ANAESTHESIA
     Dosage: 1.5-2.0%
     Route: 055
     Dates: start: 20060208, end: 20060208
  2. ATROPINE [Concomitant]
     Indication: PREMEDICATION
     Route: 030
     Dates: start: 20060208, end: 20060208
  3. ATROPINE [Concomitant]
     Indication: EXTUBATION
     Dates: start: 20060208, end: 20060208
  4. MIDAZOLAM HCL [Concomitant]
     Indication: ANAESTHETIC PREMEDICATION
     Route: 030
     Dates: start: 20060208, end: 20060208
  5. THIOPENTAL SODIUM [Concomitant]
     Indication: INDUCTION OF ANAESTHESIA
     Route: 042
     Dates: start: 20060208, end: 20060208
  6. VECURONIUM BROMIDE [Concomitant]
     Indication: INDUCTION OF ANAESTHESIA
     Route: 042
     Dates: start: 20060208, end: 20060208
  7. OXYGEN [Concomitant]
     Indication: MAINTENANCE OF ANAESTHESIA
     Route: 055
     Dates: start: 20060208, end: 20060208
  8. NITROUS OXIDE [Concomitant]
     Indication: MAINTENANCE OF ANAESTHESIA
     Dosage: 33%-50%
     Route: 055
     Dates: start: 20060208, end: 20060208
  9. FLURBIPROFEN [Concomitant]
     Indication: PROCEDURAL PAIN
     Route: 042
  10. FENTANYL-100 [Concomitant]
     Indication: INDUCTION OF ANAESTHESIA
     Route: 040
     Dates: start: 20060208, end: 20060208

REACTIONS (3)
  - HYPERTHERMIA MALIGNANT [None]
  - PAIN IN EXTREMITY [None]
  - RHABDOMYOLYSIS [None]
